FAERS Safety Report 24246944 (Version 1)
Quarter: 2024Q3

REPORT INFORMATION
  Report Type: Spontaneous
  Country: HU (occurrence: HU)
  Receive Date: 20240826
  Receipt Date: 20240826
  Transmission Date: 20241016
  Serious: Yes (Life-Threatening, Hospitalization, Other)
  Sender: GLAXOSMITHKLINE
  Company Number: HU-GLAXOSMITHKLINE-HU2024GSK103152

PATIENT

DRUGS (2)
  1. LAMOTRIGINE [Suspect]
     Active Substance: LAMOTRIGINE
     Indication: Juvenile myoclonic epilepsy
     Dosage: 50 MG, BID GRADUALLY INCREASING DOSE
  2. LAMOTRIGINE [Suspect]
     Active Substance: LAMOTRIGINE
     Dosage: 12.5 MG, BID

REACTIONS (49)
  - Toxic epidermal necrolysis [Recovered/Resolved]
  - Dehydration [Recovered/Resolved]
  - Temperature regulation disorder [Recovered/Resolved]
  - Stevens-Johnson syndrome [Recovered/Resolved]
  - Stomatitis [Recovered/Resolved]
  - Lymphadenopathy [Recovered/Resolved]
  - Ocular hyperaemia [Recovered/Resolved]
  - Pain [Recovered/Resolved]
  - Lip swelling [Recovered/Resolved]
  - Tongue ulceration [Recovered/Resolved]
  - Mouth ulceration [Recovered/Resolved]
  - Pyrexia [Recovered/Resolved]
  - Dysphagia [Recovered/Resolved]
  - Rash papular [Recovered/Resolved]
  - Condition aggravated [Recovered/Resolved]
  - Conjunctivitis [Recovered/Resolved]
  - Epidermolysis bullosa [Recovered/Resolved]
  - Blister [Recovered/Resolved]
  - Nikolsky^s sign [Recovered/Resolved]
  - Bradycardia [Recovered/Resolved]
  - Supraventricular extrasystoles [Recovered/Resolved]
  - Hypothermia [Recovered/Resolved]
  - Acute kidney injury [Recovered/Resolved]
  - Oliguria [Recovered/Resolved]
  - Leukopenia [Recovered/Resolved]
  - Hypotension [Recovered/Resolved]
  - Hypernatraemia [Recovered/Resolved]
  - Polyuria [Recovered/Resolved]
  - Anaemia [Recovered/Resolved]
  - Eye swelling [Recovered/Resolved]
  - Conjunctival haemorrhage [Recovered/Resolved]
  - Conjunctival oedema [Recovered/Resolved]
  - Blepharitis [Recovered/Resolved]
  - Madarosis [Recovered/Resolved]
  - Symblepharon [Recovered/Resolved]
  - Trichiasis [Recovered/Resolved]
  - Dry eye [Recovered/Resolved]
  - Cardiac dysfunction [Recovered/Resolved]
  - Conjunctival hyperaemia [Recovered/Resolved]
  - Eye discharge [Recovered/Resolved]
  - Skin exfoliation [Recovered/Resolved]
  - Meibomian gland dysfunction [Recovered/Resolved]
  - Scar [Recovered/Resolved]
  - Skin ulcer [Recovered/Resolved]
  - Corneal epithelium defect [Recovered/Resolved]
  - Acute respiratory distress syndrome [Recovered/Resolved]
  - Sepsis [Recovered/Resolved]
  - Renal tubular necrosis [Recovered/Resolved]
  - Electrolyte imbalance [Recovered/Resolved]
